FAERS Safety Report 5746515-5 (Version None)
Quarter: 2008Q2

REPORT INFORMATION
  Report Type: 
  Country: None (occurrence: None)
  Receive Date: 20080522
  Receipt Date: 20070405
  Transmission Date: 20081010
  Serious: Yes (Hospitalization)
  Sender: FDA-Public Use
  Company Number: US-BRISTOL-MYERS SQUIBB COMPANY-13740568

PATIENT
  Age: 65 Year
  Sex: Male

DRUGS (3)
  1. CYTOXAN [Suspect]
  2. REVLIMID [Suspect]
     Indication: MULTIPLE MYELOMA
     Route: 048
     Dates: start: 20060807
  3. VELCADE [Suspect]

REACTIONS (1)
  - WHITE BLOOD CELL COUNT DECREASED [None]
